FAERS Safety Report 4580574-0 (Version None)
Quarter: 2005Q1

REPORT INFORMATION
  Report Type: 
  Country: None (occurrence: None)
  Receive Date: 20050127
  Receipt Date: 20040818
  Transmission Date: 20050727
  Serious: No
  Sender: FDA-Public Use
  Company Number: USA040875877

PATIENT
  Age: 52 Year
  Sex: Male
  Weight: 77 kg

DRUGS (2)
  1. STRATTERA [Suspect]
     Indication: ATTENTION DEFICIT/HYPERACTIVITY DISORDER
     Dosage: 40 MG/1 DAY
     Dates: start: 20040805, end: 20040811
  2. WELLBUTRIN [Concomitant]

REACTIONS (7)
  - ASTHENIA [None]
  - DYSURIA [None]
  - GROIN PAIN [None]
  - MUSCLE SPASMS [None]
  - MYALGIA [None]
  - PAIN [None]
  - PARAESTHESIA [None]
